FAERS Safety Report 5479618-3 (Version None)
Quarter: 2007Q4

REPORT INFORMATION
  Report Type: 
  Country: None (occurrence: None)
  Receive Date: 20071008
  Receipt Date: 20071008
  Transmission Date: 20080405
  Serious: Yes (Hospitalization)
  Sender: FDA-Public Use
  Company Number: A0686408A

PATIENT
  Sex: Female

DRUGS (1)
  1. NICORETTE [Suspect]
     Indication: TOBACCO ABUSE
     Route: 002

REACTIONS (4)
  - IRRITABILITY [None]
  - NERVOUSNESS [None]
  - VENOUS OCCLUSION [None]
  - VIOLENCE-RELATED SYMPTOM [None]
